FAERS Safety Report 18101957 (Version 6)
Quarter: 2021Q1

REPORT INFORMATION
  Report Type: Report from Study
  Country: None (occurrence: US)
  Receive Date: 20200802
  Receipt Date: 20210206
  Transmission Date: 20210419
  Serious: Yes (Other)
  Sender: FDA-Public Use
  Company Number: US-ABBVIE-20K-163-3504533-00

PATIENT
  Age: 87 Year
  Sex: Male

DRUGS (3)
  1. RINVOQ [Suspect]
     Active Substance: UPADACITINIB
     Indication: RHEUMATOID ARTHRITIS
     Route: 048
     Dates: start: 20200413
  2. COVID?19 VACCINE NOS. [Suspect]
     Active Substance: COVID-19 VACCINE NOS
     Dosage: UNKNOWN MANUFACTURER
     Route: 065
     Dates: start: 20210201, end: 20210201
  3. COVID?19 VACCINE NOS. [Suspect]
     Active Substance: COVID-19 VACCINE NOS
     Indication: PRODUCT USED FOR UNKNOWN INDICATION
     Dosage: UNKNOWN MANUFACTURER
     Route: 065

REACTIONS (10)
  - Osteoporosis [Not Recovered/Not Resolved]
  - Fall [Recovering/Resolving]
  - Osteopenia [Recovering/Resolving]
  - Pain [Recovering/Resolving]
  - Spinal fracture [Recovering/Resolving]
  - Exposure to SARS-CoV-2 [Recovering/Resolving]
  - Pathological fracture [Recovered/Resolved]
  - Spinal fracture [Recovering/Resolving]
  - Spinal stenosis [Not Recovered/Not Resolved]
  - Rib fracture [Recovering/Resolving]

NARRATIVE: CASE EVENT DATE: 2020
